FAERS Safety Report 12362417 (Version 1)
Quarter: 2016Q2

REPORT INFORMATION
  Report Type: Report from Study
  Country: US (occurrence: US)
  Receive Date: 20160512
  Receipt Date: 20160512
  Transmission Date: 20160815
  Serious: Yes (Hospitalization)
  Sender: FDA-Public Use
  Company Number: US-BAYER-2016-059178

PATIENT
  Age: 68 Year
  Sex: Male

DRUGS (3)
  1. NEXAVAR [Suspect]
     Active Substance: SORAFENIB
     Indication: HEPATIC CANCER
     Dosage: 400 MG, BID
     Route: 048
     Dates: start: 20160312, end: 2016
  2. NEXAVAR [Suspect]
     Active Substance: SORAFENIB
     Indication: HEPATIC CANCER
     Dosage: 400 MG, BID
     Route: 048
     Dates: start: 2016, end: 2016
  3. NEXAVAR [Suspect]
     Active Substance: SORAFENIB
     Indication: HEPATIC CANCER
     Dosage: 400 MG, BID
     Route: 048
     Dates: start: 2016

REACTIONS (10)
  - Fluid retention [None]
  - Hypophagia [None]
  - Ageusia [None]
  - Fatigue [None]
  - Decreased appetite [None]
  - Dysgeusia [None]
  - Infection [None]
  - Blood pressure systolic increased [None]
  - Drug dose omission [None]
  - Dysgeusia [None]

NARRATIVE: CASE EVENT DATE: 20160315
